FAERS Safety Report 5006109-6 (Version None)
Quarter: 2006Q1

REPORT INFORMATION
  Report Type: 
  Country: None (occurrence: None)
  Receive Date: 20060328
  Receipt Date: 20060207
  Transmission Date: 20060701
  Serious: Yes (Disabling)
  Sender: FDA-Public Use
  Company Number: 05P-163-0316164-00

PATIENT
  Age: 55 Year
  Sex: Male
  Weight: 87 kg

DRUGS (4)
  1. HUMIRA [Suspect]
     Indication: CROHN'S DISEASE
     Dosage: 120 MG, 1 IN 1 WK, SUBCUTANEOUS
     Route: 058
     Dates: start: 20040201, end: 20050201
  2. AZITHROMYCIN [Concomitant]
  3. METHOTREXATE [Concomitant]
  4. METRONIDAZOLE [Concomitant]

REACTIONS (1)
  - HYPERTENSION [None]
